FAERS Safety Report 24666440 (Version 1)
Quarter: 2024Q4

REPORT INFORMATION
  Report Type: Spontaneous
  Country: CH (occurrence: CH)
  Receive Date: 20241126
  Receipt Date: 20241126
  Transmission Date: 20250114
  Serious: Yes (Other)
  Sender: ABBVIE
  Company Number: CH-ABBVIE-6013971

PATIENT
  Age: 76 Year
  Sex: Female
  Weight: 55 kg

DRUGS (8)
  1. VENETOCLAX [Suspect]
     Active Substance: VENETOCLAX
     Indication: Acute myeloid leukaemia
     Route: 048
     Dates: start: 20240525, end: 20240903
  2. AZACITIDINE [Suspect]
     Active Substance: AZACITIDINE
     Indication: Acute myeloid leukaemia
     Route: 065
     Dates: start: 20240715, end: 20240903
  3. AZACITIDINE [Suspect]
     Active Substance: AZACITIDINE
     Indication: Acute myeloid leukaemia
     Route: 065
     Dates: start: 20240525, end: 20240714
  4. MIRTAZAPINE [Concomitant]
     Active Substance: MIRTAZAPINE
     Indication: Sleep disorder
     Dates: start: 202406
  5. Metronidazolum (Metronidazol) [Concomitant]
     Indication: Cholecystitis
     Dates: start: 20240525, end: 20240526
  6. Meropenemum (Meropenem) [Concomitant]
     Indication: Product used for unknown indication
     Dates: start: 20240526, end: 20240609
  7. CEFEPIME [Concomitant]
     Active Substance: CEFEPIME HYDROCHLORIDE
     Indication: Pyrexia
     Dates: start: 20240617, end: 20240620
  8. CEFEPIME [Concomitant]
     Active Substance: CEFEPIME HYDROCHLORIDE
     Indication: Pyrexia
     Dates: start: 20240518, end: 20240526

REACTIONS (13)
  - Pancytopenia [Recovering/Resolving]
  - Hypertension [Unknown]
  - Palpitations [Unknown]
  - Neutropenia [Unknown]
  - Polymyositis [Unknown]
  - Rash [Unknown]
  - Pyrexia [Unknown]
  - Sleep disorder [Unknown]
  - Malnutrition [Unknown]
  - Rash [Unknown]
  - Thrombocytopenia [Unknown]
  - Leukopenia [Unknown]
  - Anaemia [Unknown]

NARRATIVE: CASE EVENT DATE: 20240101
